FAERS Safety Report 17846099 (Version 1)
Quarter: 2020Q2

REPORT INFORMATION
  Report Type: Spontaneous
  Country: US (occurrence: US)
  Receive Date: 20200531
  Receipt Date: 20200531
  Transmission Date: 20200714
  Serious: No
  Sender: FDA-Public Use
  Company Number: None

PATIENT
  Age: 66 Year
  Sex: Female

DRUGS (4)
  1. TRIAMTERENE/HYDROCHLOROTH 37.5-25 [Concomitant]
  2. METFORMIN HYDROCHLORIDE ER TABLET [Suspect]
     Active Substance: METFORMIN HYDROCHLORIDE
     Indication: DIABETES MELLITUS
     Route: 048
     Dates: start: 20040101
  3. DILTIAZEM HYDROCHLORIDE ER 240/24HR [Concomitant]
  4. MONTELUKAST SODIUM 10MG [Concomitant]
     Active Substance: MONTELUKAST SODIUM

REACTIONS (2)
  - Product substitution issue [None]
  - Blood glucose increased [None]

NARRATIVE: CASE EVENT DATE: 20200530
